FAERS Safety Report 7844895-8 (Version None)
Quarter: 2011Q4

REPORT INFORMATION
  Report Type: 
  Country: None (occurrence: None)
  Receive Date: 20111025
  Receipt Date: 20111013
  Transmission Date: 20120403
  Serious: Yes (Hospitalization, Other)
  Sender: FDA-Public Use
  Company Number: US-BAYER-2011-063950

PATIENT
  Age: 24 Year
  Sex: Female
  Weight: 52.154 kg

DRUGS (7)
  1. TRANSDERM-SCOP PATCH [Concomitant]
     Dosage: UNK
     Dates: start: 20090423
  2. YAZ [Suspect]
     Indication: CONTRACEPTION
     Dosage: UNK
     Dates: start: 20090101, end: 20090901
  3. ANTIBIOTICS [Concomitant]
  4. NSAID'S [Concomitant]
     Dosage: UNK UNK, PRN
     Route: 048
  5. LEXAPRO [Concomitant]
     Indication: ANXIETY
     Dosage: 10 G, QD
     Route: 048
     Dates: start: 20060401
  6. ASCORBIC ACID [Concomitant]
     Dosage: UNK
     Route: 048
  7. ALEVE [Concomitant]
     Dosage: UNK UNK, PRN
     Route: 048

REACTIONS (8)
  - GALLBLADDER DISORDER [None]
  - ANXIETY [None]
  - PAIN [None]
  - CHOLECYSTITIS CHRONIC [None]
  - ANHEDONIA [None]
  - MENTAL DISORDER [None]
  - INJURY [None]
  - POST CHOLECYSTECTOMY SYNDROME [None]
